FAERS Safety Report 10051180 (Version 2)
Quarter: 2014Q2

REPORT INFORMATION
  Report Type: Spontaneous
  Country: US (occurrence: US)
  Receive Date: 20140401
  Receipt Date: 20140519
  Transmission Date: 20141212
  Serious: Yes (Disabling, Other)
  Sender: FDA-Public Use
  Company Number: US-PFIZER INC-2014091880

PATIENT
  Age: 50 Year
  Sex: Male
  Weight: 95.24 kg

DRUGS (2)
  1. EFFEXOR XR [Suspect]
     Indication: DEPRESSION
     Dosage: 150 MG, 2X/DAY
     Route: 048
  2. SEROQUEL [Concomitant]
     Dosage: UNK

REACTIONS (2)
  - Major depression [Unknown]
  - Social phobia [Unknown]
